FAERS Safety Report 12408159 (Version 3)
Quarter: 2016Q3

REPORT INFORMATION
  Report Type: Report from Study
  Country: CH (occurrence: CH)
  Receive Date: 20160526
  Receipt Date: 20160826
  Transmission Date: 20161109
  Serious: Yes (Other)
  Sender: FDA-Public Use
  Company Number: CH-PFIZER INC-2016274109

PATIENT

DRUGS (4)
  1. PROPRANOLOL [Concomitant]
     Active Substance: PROPRANOLOL\PROPRANOLOL HYDROCHLORIDE
  2. PREGABALIN. [Suspect]
     Active Substance: PREGABALIN
     Dosage: UNK
     Route: 064
  3. TRAMADOL. [Concomitant]
     Active Substance: TRAMADOL
  4. MORPHINE [Concomitant]
     Active Substance: MORPHINE

REACTIONS (2)
  - Maternal exposure during pregnancy [Unknown]
  - Neonatal respiratory distress syndrome [Unknown]
